FAERS Safety Report 8341040-X (Version None)
Quarter: 2012Q2

REPORT INFORMATION
  Report Type: 
  Country: None (occurrence: None)
  Receive Date: 20120507
  Receipt Date: 20120426
  Transmission Date: 20120825
  Serious: Yes (Hospitalization)
  Sender: FDA-Public Use
  Company Number: US-GLAXOSMITHKLINE-A0789343A

PATIENT
  Age: 64 Year
  Sex: Female

DRUGS (1)
  1. AVANDIA [Suspect]
     Indication: DIABETES MELLITUS
     Dosage: 4MG TWICE PER DAY
     Route: 048
     Dates: start: 20060501, end: 20070301

REACTIONS (5)
  - MYOCARDIAL INFARCTION [None]
  - THORACIC CAVITY DRAINAGE [None]
  - CORONARY ARTERY DISEASE [None]
  - CORONARY ARTERY BYPASS [None]
  - STENT PLACEMENT [None]
